FAERS Safety Report 14142441 (Version 1)
Quarter: 2017Q4

REPORT INFORMATION
  Report Type: Not Available
  Country: US (occurrence: US)
  Receive Date: 20171030
  Receipt Date: 20171030
  Transmission Date: 20180321
  Serious: Yes (Other)
  Sender: FDA-Public Use
  Company Number: US-ANIPHARMA-2017-US-012016

PATIENT
  Age: 36 Year
  Sex: Male

DRUGS (13)
  1. HYDROCORTISONE 1% [Concomitant]
     Active Substance: HYDROCORTISONE
     Dosage: AS NEEDED
     Route: 061
  2. LEVALBUTEROL. [Concomitant]
     Active Substance: LEVALBUTEROL
     Dosage: 45 MCG DAILY AS NEEDED
     Route: 055
  3. BENZTROPINE MESYLATE. [Concomitant]
     Active Substance: BENZTROPINE MESYLATE
     Dosage: 1 MG TWICE DAILY
     Route: 048
  4. MOMETASONE FUROATE 200 MCG/5 MCG [Concomitant]
     Dosage: AS NEEDED TWICE DAILY
  5. HYDROXYZINE [Concomitant]
     Active Substance: HYDROXYZINE HYDROCHLORIDE
     Dosage: 75 MG AS NEEDED NIGHTLY
  6. ACETAMINOPHEN WITH CODEINE 300 MG/30 MG [Concomitant]
     Dosage: AS NEEDED EVERY 6 HOURS
  7. VALPROIC ACID (NON-SPECIFIC) [Concomitant]
     Active Substance: VALPROIC ACID
     Dosage: 500 MG TWICE DAILY
  8. RANITIDINE. [Concomitant]
     Active Substance: RANITIDINE
     Dosage: 150 MG TWICE DAILY
  9. PHENYTOIN SODIUM (NON-SPECIFIC) [Suspect]
     Active Substance: PHENYTOIN SODIUM
     Dosage: 300 MG DAILY
  10. ZIPRASIDONE. [Concomitant]
     Active Substance: ZIPRASIDONE
     Dosage: 60 MG TWICE DAILY
  11. BENADRYL [Concomitant]
     Active Substance: DIPHENHYDRAMINE HYDROCHLORIDE
     Dosage: 50 MG AS NEEDED
  12. LORATADINE. [Concomitant]
     Active Substance: LORATADINE
     Dosage: 10 MG DAILY
  13. SILVER SULFADIAZINE 1% [Concomitant]
     Route: 061

REACTIONS (1)
  - Drug reaction with eosinophilia and systemic symptoms [Unknown]
